FAERS Safety Report 5420829-0 (Version None)
Quarter: 2007Q3

REPORT INFORMATION
  Report Type: 
  Country: None (occurrence: None)
  Receive Date: 20070821
  Receipt Date: 20070808
  Transmission Date: 20080115
  Serious: Yes (Hospitalization, Other)
  Sender: FDA-Public Use
  Company Number: CA-ELI_LILLY_AND_COMPANY-CA200705004801

PATIENT
  Age: 67 Year
  Sex: Female

DRUGS (18)
  1. FORTEO [Suspect]
     Indication: OSTEOPOROSIS
     Dosage: 20 UG, DAILY (1/D)
     Route: 058
     Dates: start: 20070223
  2. RABEPRAZOLE SODIUM [Concomitant]
  3. BUSCOPAN [Concomitant]
  4. CELEXA [Concomitant]
  5. ARTHROTEC [Concomitant]
     Dosage: 75 MG, 2/D
     Route: 048
  6. SYNTHROID [Concomitant]
     Dosage: 0.1 MG, DAILY (1/D)
     Route: 048
  7. NOVOCAIN [Concomitant]
  8. NITRAZEPAM [Concomitant]
     Dosage: 20 MG, EACH EVENING
     Route: 048
  9. MORPHINE [Concomitant]
  10. DEMEROL [Concomitant]
     Dosage: 50 MG, AS NEEDED
     Route: 048
  11. DRISDOL [Concomitant]
  12. ASCORBIC ACID [Concomitant]
     Dosage: 1000 MG, DAILY (1/D)
     Route: 048
  13. TUMS E-X [Concomitant]
     Dosage: UNK, 3/D
     Route: 048
  14. COSOPT [Concomitant]
     Dosage: UNK D/F, 2/D
  15. TRAVATAN [Concomitant]
     Dosage: UNK, EACH EVENING
  16. FENTANYL [Concomitant]
     Route: 062
  17. NYSTATIN [Concomitant]
     Route: 061
  18. NOVOQUININE [Concomitant]
     Dosage: 300 MG, DAILY (1/D)
     Route: 048

REACTIONS (3)
  - GASTRECTOMY [None]
  - GASTROINTESTINAL STOMA COMPLICATION [None]
  - GASTROINTESTINAL TUBE INSERTION [None]
